FAERS Safety Report 4587987-1 (Version None)
Quarter: 2005Q1

REPORT INFORMATION
  Report Type: 
  Country: None (occurrence: None)
  Receive Date: 20050221
  Receipt Date: 20050210
  Transmission Date: 20050727
  Serious: Yes (Hospitalization)
  Sender: FDA-Public Use
  Company Number: US-ABBOTT-05P-163-0290240-00

PATIENT
  Sex: Female
  Weight: 86.26 kg

DRUGS (10)
  1. HUMIRA [Suspect]
     Indication: RHEUMATOID ARTHRITIS
     Route: 058
     Dates: start: 20021101, end: 20030601
  2. PREDNISONE [Concomitant]
     Indication: RHEUMATOID ARTHRITIS
     Route: 048
  3. LEFLUNOMIDE [Concomitant]
     Indication: RHEUMATOID ARTHRITIS
     Route: 048
  4. GABAPENTIN [Concomitant]
     Indication: NERVE COMPRESSION
     Route: 048
  5. PROPACET 100 [Concomitant]
     Indication: RHEUMATOID ARTHRITIS
     Route: 048
  6. RANITIDINE [Concomitant]
     Indication: GASTRIC DISORDER
     Route: 048
  7. FLUOXETINE HYDROCHLORIDE [Concomitant]
     Indication: ANXIETY
     Route: 048
  8. BUSPIRONE HCL [Concomitant]
     Indication: ANXIETY
     Route: 048
  9. NABUMETONE [Concomitant]
     Indication: RHEUMATOID ARTHRITIS
     Route: 048
     Dates: start: 20040801
  10. FORTEO [Concomitant]
     Indication: BONE DENSITY DECREASED
     Route: 050

REACTIONS (5)
  - BLINDNESS UNILATERAL [None]
  - INFLUENZA LIKE ILLNESS [None]
  - INTRAOCULAR PRESSURE INCREASED [None]
  - RETINAL VASCULAR THROMBOSIS [None]
  - THROMBOSIS [None]
